FAERS Safety Report 23230408 (Version 1)
Quarter: 2023Q4

REPORT INFORMATION
  Report Type: Spontaneous
  Country: US (occurrence: US)
  Receive Date: 20231127
  Receipt Date: 20231127
  Transmission Date: 20240109
  Serious: No
  Sender: FDA-Public Use
  Company Number: US-002147023-NVSC2023US200160

PATIENT

DRUGS (3)
  1. COSENTYX [Suspect]
     Active Substance: SECUKINUMAB
     Indication: Psoriasis
     Dosage: UNK ROUTE OF ADMIN (FREE TEXT): INJECTION NOT OTHERWISE SPECIFIED
     Route: 065
     Dates: start: 2019
  2. METHOTREXATE [Suspect]
     Active Substance: METHOTREXATE
     Indication: Psoriasis
     Dosage: UNK
     Route: 065
  3. MUPIROCIN [Suspect]
     Active Substance: MUPIROCIN
     Indication: Psoriasis
     Dosage: UNK
     Route: 065

REACTIONS (9)
  - Seborrhoeic keratosis [Unknown]
  - Papule [Unknown]
  - Pseudocyst [Unknown]
  - Skin lesion [Unknown]
  - Melanocytic naevus [Unknown]
  - Therapeutic product effect incomplete [Unknown]
  - Skin papilloma [Unknown]
  - Urticaria papular [Unknown]
  - Scab [Unknown]
